FAERS Safety Report 4983298-0 (Version None)
Quarter: 2006Q2

REPORT INFORMATION
  Report Type: 
  Country: None (occurrence: None)
  Receive Date: 20060426
  Receipt Date: 20050414
  Transmission Date: 20061013
  Serious: Yes (Hospitalization, Disabling)
  Sender: FDA-Public Use
  Company Number: US-MERCK-0504USA02391

PATIENT
  Age: 60 Year
  Sex: Male
  Weight: 80 kg

DRUGS (4)
  1. VIOXX [Suspect]
     Indication: ARTHRITIS
     Route: 048
     Dates: start: 19990601, end: 20010401
  2. VIOXX [Suspect]
     Route: 048
     Dates: start: 19990601, end: 20010401
  3. VIOXX [Suspect]
     Route: 048
     Dates: start: 19990601, end: 20010401
  4. VIOXX [Suspect]
     Route: 048
     Dates: start: 19990601, end: 20010401

REACTIONS (8)
  - AMNESIA [None]
  - ANGINA PECTORIS [None]
  - ARTHROPATHY [None]
  - BACK INJURY [None]
  - CHEST PAIN [None]
  - CORONARY ARTERY DISEASE [None]
  - DEPRESSION [None]
  - MYOCARDIAL INFARCTION [None]
